FAERS Safety Report 19674947 (Version 1)
Quarter: 2021Q3

REPORT INFORMATION
  Report Type: Spontaneous
  Country: US (occurrence: US)
  Receive Date: 20210809
  Receipt Date: 20210809
  Transmission Date: 20211014
  Serious: Yes (Other)
  Sender: FDA-Public Use
  Company Number: None

PATIENT
  Age: 73 Year
  Sex: Female
  Weight: 57.06 kg

DRUGS (10)
  1. FOSAMAX [Concomitant]
     Active Substance: ALENDRONATE SODIUM
  2. PEPCID [Concomitant]
     Active Substance: FAMOTIDINE
  3. DOCETAXEL. [Suspect]
     Active Substance: DOCETAXEL
  4. CHONDROITIN GLUCOSAMINE [Concomitant]
  5. ENOXAPARIN [Concomitant]
     Active Substance: ENOXAPARIN
  6. ANASTROZOLE. [Concomitant]
     Active Substance: ANASTROZOLE
  7. LEVOTHYROXINE. [Concomitant]
     Active Substance: LEVOTHYROXINE
  8. CRESTOR [Concomitant]
     Active Substance: ROSUVASTATIN CALCIUM
  9. OMEGA 3 [Concomitant]
     Active Substance: OMEGA-3 FATTY ACIDS
  10. FIBER [Concomitant]
     Active Substance: PSYLLIUM HUSK

REACTIONS (1)
  - Pulmonary fibrosis [None]

NARRATIVE: CASE EVENT DATE: 20210729
